FAERS Safety Report 12254419 (Version 1)
Quarter: 2016Q2

REPORT INFORMATION
  Report Type: Spontaneous
  Country: TH (occurrence: TH)
  Receive Date: 20160411
  Receipt Date: 20160411
  Transmission Date: 20160815
  Serious: Yes (Death, Hospitalization)
  Sender: FDA-Public Use
  Company Number: TH-IPCA LABORATORIES LIMITED-IPC201603-000358

PATIENT
  Age: 77 Year
  Sex: Female

DRUGS (1)
  1. ALLOPURINOL. [Suspect]
     Active Substance: ALLOPURINOL

REACTIONS (2)
  - Sepsis [Fatal]
  - Toxic epidermal necrolysis [Not Recovered/Not Resolved]
